FAERS Safety Report 10153198 (Version 3)
Quarter: 2014Q3

REPORT INFORMATION
  Report Type: Spontaneous
  Country: US (occurrence: US)
  Receive Date: 20140505
  Receipt Date: 20140730
  Transmission Date: 20150326
  Serious: Yes (Hospitalization)
  Sender: FDA-Public Use
  Company Number: US-GILEAD-2014-0101554

PATIENT
  Sex: Male

DRUGS (2)
  1. LETAIRIS [Suspect]
     Active Substance: AMBRISENTAN
     Indication: IDIOPATHIC PULMONARY FIBROSIS
     Dosage: 10 MG, QD
     Route: 065
     Dates: start: 20130110, end: 201401
  2. LETAIRIS [Suspect]
     Active Substance: AMBRISENTAN
     Indication: PULMONARY HYPERTENSION

REACTIONS (2)
  - Sinusitis [Unknown]
  - Dyspnoea [Unknown]
